FAERS Safety Report 12914459 (Version 1)
Quarter: 2016Q4

REPORT INFORMATION
  Report Type: Spontaneous
  Country: US (occurrence: US)
  Receive Date: 20161106
  Receipt Date: 20161106
  Transmission Date: 20170207
  Serious: No
  Sender: FDA-Public Use
  Company Number: US-RELYPSA-RLY2016001743

PATIENT
  Age: 68 Year
  Sex: Female

DRUGS (16)
  1. DILTIAZEM. [Concomitant]
     Active Substance: DILTIAZEM
  2. FUROSEMIDE. [Concomitant]
     Active Substance: FUROSEMIDE
  3. NORCO [Concomitant]
     Active Substance: ACETAMINOPHEN\HYDROCODONE BITARTRATE
  4. GAS-X [Concomitant]
     Active Substance: DIMETHICONE
  5. PLAVIX [Concomitant]
     Active Substance: CLOPIDOGREL BISULFATE
  6. ZINC [Concomitant]
     Active Substance: ZINC\ZINC CHLORIDE
  7. MORPHINE ER [Concomitant]
     Active Substance: MORPHINE
  8. BIOTIN [Concomitant]
     Active Substance: BIOTIN
  9. CARVEDILOL. [Concomitant]
     Active Substance: CARVEDILOL
  10. FOLIC ACID. [Concomitant]
     Active Substance: FOLIC ACID
  11. OPSUMIT [Concomitant]
     Active Substance: MACITENTAN
  12. CLONIDINE. [Concomitant]
     Active Substance: CLONIDINE
  13. VELTASSA [Suspect]
     Active Substance: PATIROMER
     Indication: HYPERKALAEMIA
     Dosage: 8.4 G, QD
     Route: 048
     Dates: start: 20160803, end: 20160803
  14. CELEXA [Concomitant]
     Active Substance: CITALOPRAM HYDROBROMIDE
  15. PANTOPRAZOLE [Concomitant]
     Active Substance: PANTOPRAZOLE SODIUM
  16. SENNA S [Concomitant]
     Active Substance: DOCUSATE SODIUM\SENNA LEAF

REACTIONS (7)
  - Malaise [Recovered/Resolved]
  - Vomiting [Recovered/Resolved]
  - Hyperhidrosis [Recovered/Resolved]
  - Heart rate increased [Unknown]
  - Nausea [Recovered/Resolved]
  - Abdominal pain upper [Recovered/Resolved]
  - Constipation [Recovered/Resolved]

NARRATIVE: CASE EVENT DATE: 20160803
